FAERS Safety Report 18809096 (Version 2)
Quarter: 2021Q1

REPORT INFORMATION
  Report Type: Spontaneous
  Country: US (occurrence: US)
  Receive Date: 20210129
  Receipt Date: 20210223
  Transmission Date: 20210419
  Serious: No
  Sender: FDA-Public Use
  Company Number: US-BIOVITRUM-2021US0796

PATIENT
  Age: 7 Month
  Sex: Female
  Weight: 9 kg

DRUGS (11)
  1. SYNAGIS [Suspect]
     Active Substance: PALIVIZUMAB
     Indication: PREMATURE BABY
     Route: 030
     Dates: start: 201912
  2. SYNAGIS [Suspect]
     Active Substance: PALIVIZUMAB
     Indication: LUNG DISORDER
  3. FUROSEMIDE. [Concomitant]
     Active Substance: FUROSEMIDE
     Dosage: 10 MG/ML SOLUTION
  4. FERROUS SULFATE. [Concomitant]
     Active Substance: FERROUS SULFATE
     Dosage: 15 MG/ML DROPS
  5. SYNAGIS [Suspect]
     Active Substance: PALIVIZUMAB
     Indication: MULTIPLE CONGENITAL ABNORMALITIES
  6. GERBER EXTENSIVE HA [Concomitant]
  7. PREVACID [Concomitant]
     Active Substance: LANSOPRAZOLE
     Dosage: OTC
  8. FLOVENT HFA [Concomitant]
     Active Substance: FLUTICASONE PROPIONATE
     Dosage: 110 MCG AER W/ADAP
  9. POLY?VI?SOL [Concomitant]
     Active Substance: VITAMINS
     Dosage: 750?35/ML DROPS
  10. SYNAGIS [Suspect]
     Active Substance: PALIVIZUMAB
     Indication: PULMONARY HYPERTENSION
  11. ALBUTEROL SULFATE. [Concomitant]
     Active Substance: ALBUTEROL SULFATE
     Dosage: HFA

REACTIONS (2)
  - Off label use [Unknown]
  - Weight decreased [Not Recovered/Not Resolved]

NARRATIVE: CASE EVENT DATE: 201912
